FAERS Safety Report 9071205 (Version 1)
Quarter: 2013Q1

REPORT INFORMATION
  Report Type: Report from Study
  Country: US (occurrence: US)
  Receive Date: 20130129
  Receipt Date: 20130129
  Transmission Date: 20140127
  Serious: No
  Sender: FDA-Public Use
  Company Number: US-ABBOTT-12P-163-0930066-00

PATIENT
  Sex: Female
  Weight: 74.91 kg

DRUGS (15)
  1. HUMIRA 40 MG/0.8 ML PEN [Suspect]
     Indication: RHEUMATOID ARTHRITIS
     Dates: start: 2010
  2. HUMIRA 40 MG/0.8 ML PEN [Suspect]
     Dates: start: 201106, end: 201112
  3. GABAPENTIN [Concomitant]
     Indication: PRODUCT USED FOR UNKNOWN INDICATION
  4. METOPROLOL [Concomitant]
     Indication: BLOOD PRESSURE
     Dosage: CLARIFIED DOSAGE WITH PATIENT
  5. DIOVAN [Concomitant]
     Indication: BLOOD PRESSURE
  6. FOLIC ACID [Concomitant]
     Indication: PRODUCT USED FOR UNKNOWN INDICATION
  7. CELEBREX [Concomitant]
     Indication: PRODUCT USED FOR UNKNOWN INDICATION
  8. CYMBALTA [Concomitant]
     Indication: PRODUCT USED FOR UNKNOWN INDICATION
  9. HYDROCODONE [Concomitant]
     Indication: PAIN
     Dosage: 7.5/750 AS NEEDED EVERY 8 HOURS
  10. TRAZADONE [Concomitant]
     Indication: PRODUCT USED FOR UNKNOWN INDICATION
     Dosage: AT BEDTIME
  11. ZOLPIDEM [Concomitant]
     Indication: INSOMNIA
  12. FENTANYL PATCH [Concomitant]
     Indication: PRODUCT USED FOR UNKNOWN INDICATION
     Dosage: MICROGRAMS PER HOUR
     Route: 061
  13. BLACK COHASH [Concomitant]
     Indication: PRODUCT USED FOR UNKNOWN INDICATION
  14. SYSTANE [Concomitant]
     Indication: PRODUCT USED FOR UNKNOWN INDICATION
  15. RHINARIS [Concomitant]
     Indication: PRODUCT USED FOR UNKNOWN INDICATION

REACTIONS (15)
  - Rheumatoid arthritis [Not Recovered/Not Resolved]
  - Musculoskeletal stiffness [Not Recovered/Not Resolved]
  - Dyspnoea [Not Recovered/Not Resolved]
  - Feeling abnormal [Not Recovered/Not Resolved]
  - Fatigue [Not Recovered/Not Resolved]
  - Activities of daily living impaired [Not Recovered/Not Resolved]
  - Hot flush [Not Recovered/Not Resolved]
  - Nausea [Not Recovered/Not Resolved]
  - Chills [Not Recovered/Not Resolved]
  - Pain [Not Recovered/Not Resolved]
  - Fibromyalgia [Not Recovered/Not Resolved]
  - Muscle spasms [Not Recovered/Not Resolved]
  - Night sweats [Not Recovered/Not Resolved]
  - Pain in extremity [Not Recovered/Not Resolved]
  - Groin pain [Not Recovered/Not Resolved]
